FAERS Safety Report 4678665-9 (Version None)
Quarter: 2005Q2

REPORT INFORMATION
  Report Type: 
  Country: None (occurrence: None)
  Receive Date: 20050527
  Receipt Date: 20050517
  Transmission Date: 20051028
  Serious: Yes (Death)
  Sender: FDA-Public Use
  Company Number: 2005S1000046

PATIENT
  Sex: Male

DRUGS (1)
  1. CUBICIN [Suspect]
     Dosage: IV
     Route: 042
     Dates: end: 20050301

REACTIONS (1)
  - DEATH [None]
